FAERS Safety Report 23221765 (Version 1)
Quarter: 2023Q4

REPORT INFORMATION
  Report Type: Spontaneous
  Country: US (occurrence: None)
  Receive Date: 20231123
  Receipt Date: 20231123
  Transmission Date: 20240110
  Serious: Yes (Other)
  Sender: FDA-Public Use
  Company Number: 2023A262854

PATIENT
  Age: 70 Year
  Sex: Female
  Weight: 70 kg

DRUGS (37)
  1. SYMBICORT [Suspect]
     Active Substance: BUDESONIDE\FORMOTEROL FUMARATE DIHYDRATE
     Indication: Product used for unknown indication
     Dosage: UNKNOWN UNKNOWN
     Route: 055
  2. HUMAN IMMUNOGLOBULIN G [Suspect]
     Active Substance: HUMAN IMMUNOGLOBULIN G
     Indication: Immunodeficiency common variable
     Route: 058
     Dates: start: 20180911
  3. HUMAN IMMUNOGLOBULIN G [Suspect]
     Active Substance: HUMAN IMMUNOGLOBULIN G
     Indication: Immunodeficiency common variable
     Route: 058
     Dates: start: 20180917
  4. FAMOTIDINE [Suspect]
     Active Substance: FAMOTIDINE
     Indication: Product used for unknown indication
  5. ACETAMINOPHEN [Concomitant]
     Active Substance: ACETAMINOPHEN
  6. DIPHENHYDRAMINE [Concomitant]
     Active Substance: DIPHENHYDRAMINE
  7. EPINEPHRINE [Concomitant]
     Active Substance: EPINEPHRINE
  8. NASACORT [Concomitant]
     Active Substance: TRIAMCINOLONE ACETONIDE
  9. SOMA [Concomitant]
     Active Substance: CARISOPRODOL
  10. NATURE-THROID [Concomitant]
     Active Substance: THYROID, PORCINE
  11. PREMARIN [Concomitant]
     Active Substance: ESTROGENS, CONJUGATED
  12. ASMANEX [Concomitant]
     Active Substance: MOMETASONE FUROATE
  13. LOVASTATIN [Concomitant]
     Active Substance: LOVASTATIN
  14. CLOBETASOL [Concomitant]
     Active Substance: CLOBETASOL
  15. HALOBETASOL [Concomitant]
     Active Substance: HALOBETASOL
  16. VENTOLIN [Concomitant]
     Active Substance: ALBUTEROL SULFATE
  17. CITALOPRAM [Concomitant]
     Active Substance: CITALOPRAM HYDROBROMIDE
  18. ALPRAZOLAM [Concomitant]
     Active Substance: ALPRAZOLAM
  19. ALBUTEROL SULFATE [Concomitant]
     Active Substance: ALBUTEROL SULFATE
  20. CYCLOBENZAPRINE [Concomitant]
     Active Substance: CYCLOBENZAPRINE
  21. BENZOYL PEROXIDE\CLINDAMYCIN PHOSPHATE [Concomitant]
     Active Substance: BENZOYL PEROXIDE\CLINDAMYCIN PHOSPHATE
  22. DICLOFENAC [Concomitant]
     Active Substance: DICLOFENAC
  23. OMEGA [Concomitant]
  24. LEVOFLOXACIN [Concomitant]
     Active Substance: LEVOFLOXACIN
  25. SODIUM/CALCIUM CARBONATE/COLECALCIFEROL [Concomitant]
  26. MONTELUKAST [Concomitant]
     Active Substance: MONTELUKAST SODIUM
  27. COENZYME Q10 [Concomitant]
     Active Substance: DIETARY SUPPLEMENT\UBIDECARENONE
  28. MUPIROCIN [Concomitant]
     Active Substance: MUPIROCIN
  29. THYROID [Concomitant]
     Active Substance: LEVOTHYROXINE\LIOTHYRONINE
  30. HALOBETASOL PROPIONATE [Concomitant]
     Active Substance: HALOBETASOL PROPIONATE
  31. ALBUTEROL SULFATE [Concomitant]
     Active Substance: ALBUTEROL SULFATE
  32. XOLAIR [Concomitant]
     Active Substance: OMALIZUMAB
  33. AZITHROMYCIN [Concomitant]
     Active Substance: AZITHROMYCIN
  34. AMLODIPINE BESYLATE [Concomitant]
     Active Substance: AMLODIPINE BESYLATE
  35. GABAPENTIN [Concomitant]
     Active Substance: GABAPENTIN
  36. FLOVENT HFA [Concomitant]
     Active Substance: FLUTICASONE PROPIONATE
  37. DIPHENHYDRAMINE HYDROCHLORIDE [Concomitant]
     Active Substance: DIPHENHYDRAMINE HYDROCHLORIDE

REACTIONS (13)
  - Respiratory tract infection [Unknown]
  - Device breakage [Unknown]
  - Pneumonia bacterial [Unknown]
  - Gastroenteritis viral [Unknown]
  - Nasopharyngitis [Unknown]
  - Upper respiratory tract infection [Unknown]
  - Urinary tract infection [Unknown]
  - COVID-19 [Unknown]
  - Flatulence [Recovering/Resolving]
  - Gastroenteritis viral [Not Recovered/Not Resolved]
  - Nausea [Recovering/Resolving]
  - Vomiting [Unknown]
  - Drug hypersensitivity [Unknown]

NARRATIVE: CASE EVENT DATE: 20200302
